FAERS Safety Report 20224410 (Version 1)
Quarter: 2021Q4

REPORT INFORMATION
  Report Type: Spontaneous
  Country: US (occurrence: None)
  Receive Date: 20211223
  Receipt Date: 20211223
  Transmission Date: 20220303
  Serious: Yes (Hospitalization)
  Sender: FDA-Public Use
  Company Number: None

PATIENT
  Age: 65 Year
  Sex: Male

DRUGS (1)
  1. CASIRIVIMAB\IMDEVIMAB [Suspect]
     Active Substance: CASIRIVIMAB\IMDEVIMAB
     Indication: COVID-19
     Route: 058
     Dates: start: 20211215, end: 20211215

REACTIONS (6)
  - Mental status changes [None]
  - Agitation [None]
  - Confusional state [None]
  - Hypoglycaemia [None]
  - Acute respiratory failure [None]
  - Metabolic encephalopathy [None]

NARRATIVE: CASE EVENT DATE: 20211218
